FAERS Safety Report 7884089-3 (Version None)
Quarter: 2011Q4

REPORT INFORMATION
  Report Type: 
  Country: None (occurrence: None)
  Receive Date: 20111102
  Receipt Date: 20111022
  Transmission Date: 20120403
  Serious: Yes (Hospitalization)
  Sender: FDA-Public Use
  Company Number: FR-EISAI INC-E7389-01638-CLI-FR

PATIENT
  Sex: Female
  Weight: 60 kg

DRUGS (5)
  1. MEGACE [Concomitant]
  2. AMOXICILLIN [Concomitant]
     Indication: PROPHYLAXIS
     Dates: start: 20110501
  3. DURAGESIC-100 [Concomitant]
  4. EPIRUBICIN HYDROCHLORIDE [Suspect]
     Indication: BREAST CANCER
     Route: 041
     Dates: start: 20110706, end: 20110928
  5. OXYCODONE HCL [Concomitant]

REACTIONS (2)
  - THROMBOCYTOPENIA [None]
  - HAEMATEMESIS [None]
